FAERS Safety Report 6447862-4 (Version None)
Quarter: 2009Q4

REPORT INFORMATION
  Report Type: 
  Country: None (occurrence: None)
  Receive Date: 20091120
  Receipt Date: 20091113
  Transmission Date: 20100525
  Serious: Yes (Congenital Anomaly)
  Sender: FDA-Public Use
  Company Number: US-JNJFOC-20090804106

PATIENT

DRUGS (8)
  1. FLEXERIL [Suspect]
     Route: 015
  2. FLEXERIL [Suspect]
     Indication: DRUG EXPOSURE DURING PREGNANCY
     Dosage: 10 MG 3-4 TIMES/DAY
     Route: 015
  3. REBIF [Suspect]
     Indication: DRUG EXPOSURE DURING PREGNANCY
  4. YAZ [Suspect]
     Indication: DRUG EXPOSURE DURING PREGNANCY
  5. ENOXAPARIN SODIUM [Suspect]
     Indication: DRUG EXPOSURE DURING PREGNANCY
  6. ANTIBIOTIC UNSPECIFIED [Suspect]
     Indication: DRUG EXPOSURE DURING PREGNANCY
  7. NORCO [Suspect]
     Indication: DRUG EXPOSURE DURING PREGNANCY
     Route: 015
  8. FISH OIL [Concomitant]

REACTIONS (2)
  - DRUG EXPOSURE DURING PREGNANCY [None]
  - SPINA BIFIDA [None]
